FAERS Safety Report 8199813-2 (Version None)
Quarter: 2012Q1

REPORT INFORMATION
  Report Type: 
  Country: None (occurrence: None)
  Receive Date: 20120312
  Receipt Date: 20120229
  Transmission Date: 20120608
  Serious: Yes (Hospitalization)
  Sender: FDA-Public Use
  Company Number: US-BIOGENIDEC-2012BI001754

PATIENT
  Age: 30 Year
  Sex: Female

DRUGS (3)
  1. AVONEX [Suspect]
     Indication: MULTIPLE SCLEROSIS
     Route: 030
     Dates: start: 19991016
  2. AVONEX [Suspect]
     Route: 030
     Dates: start: 20120220
  3. AVONEX [Suspect]
     Route: 030
     Dates: start: 20100918

REACTIONS (1)
  - CAESAREAN SECTION [None]
